FAERS Safety Report 11199135 (Version 1)
Quarter: 2015Q2

REPORT INFORMATION
  Report Type: Spontaneous
  Country: JP (occurrence: None)
  Receive Date: 20150616
  Receipt Date: 20150616
  Transmission Date: 20150821
  Serious: Yes (Other)
  Sender: FDA-Public Use
  Company Number: 2015FE01680

PATIENT
  Age: 85 Year
  Sex: Male
  Weight: 45 kg

DRUGS (3)
  1. GONAX (DEGARELIX) POWDER AND SOLVENT FOR SOLUTION FOR INJECTION [Suspect]
     Active Substance: DEGARELIX
     Indication: PROSTATE CANCER
     Dates: start: 20121128, end: 20121128
  2. ALEVIATIN (PHENYTOIN) [Concomitant]
     Active Substance: PHENYTOIN SODIUM
  3. RINDERON V [Concomitant]
     Active Substance: BETAMETHASONE VALERATE

REACTIONS (4)
  - Injection site cellulitis [None]
  - Influenza [None]
  - Cerebral infarction [None]
  - Pneumonia aspiration [None]

NARRATIVE: CASE EVENT DATE: 20141224
